FAERS Safety Report 26103792 (Version 1)
Quarter: 2025Q4

REPORT INFORMATION
  Report Type: Spontaneous
  Country: US (occurrence: US)
  Receive Date: 20251129
  Receipt Date: 20251129
  Transmission Date: 20260118
  Serious: Yes (Other)
  Sender: ACCORD
  Company Number: US-Accord-515140

PATIENT
  Age: 57 Year
  Sex: Female

DRUGS (2)
  1. CISPLATIN [Suspect]
     Active Substance: CISPLATIN
     Indication: Carcinoma ex-pleomorphic adenoma
     Dosage: VOLUME: 151ML
  2. CISPLATIN [Suspect]
     Active Substance: CISPLATIN
     Indication: Carcinoma ex-pleomorphic adenoma
     Dosage: VOLUME: 121ML

REACTIONS (5)
  - Aphasia [Recovered/Resolved]
  - Seizure [Recovered/Resolved]
  - Cerebral disorder [Recovered/Resolved]
  - Magnetic resonance imaging head abnormal [Recovered/Resolved]
  - Off label use [Unknown]
